FAERS Safety Report 6272449-6 (Version None)
Quarter: 2009Q3

REPORT INFORMATION
  Report Type: 
  Country: None (occurrence: None)
  Receive Date: 20090713
  Receipt Date: 20090408
  Transmission Date: 20100115
  Serious: Yes (Hospitalization)
  Sender: FDA-Public Use
  Company Number: 626938

PATIENT
  Age: 53 Year
  Sex: Female
  Weight: 59.4 kg

DRUGS (2)
  1. BONIVA [Suspect]
     Indication: OSTEOPOROSIS
     Dosage: 150 MG  1 PER MONTH  ORAL
     Route: 048
     Dates: start: 20090402, end: 20090402
  2. VYTORIN [Suspect]
     Indication: BLOOD CHOLESTEROL
     Dosage: 1 PER DAY  ORAL
     Route: 048
     Dates: start: 20090323, end: 20090406

REACTIONS (2)
  - CHEST PAIN [None]
  - PALPITATIONS [None]
